FAERS Safety Report 16958077 (Version 7)
Quarter: 2021Q3

REPORT INFORMATION
  Report Type: Spontaneous
  Country: US (occurrence: US)
  Receive Date: 20191024
  Receipt Date: 20210817
  Transmission Date: 20211014
  Serious: No
  Sender: FDA-Public Use
  Company Number: US-TAKEDA-2019TUS058433

PATIENT
  Age: 70 Year
  Sex: Female
  Weight: 52.61 kg

DRUGS (9)
  1. CYTOXAN [Suspect]
     Active Substance: CYCLOPHOSPHAMIDE
     Indication: PRODUCT USED FOR UNKNOWN INDICATION
     Dosage: 50 MILLIGRAM
     Route: 065
  2. XPOVIO [Suspect]
     Active Substance: SELINEXOR
     Dosage: 20 MILLIGRAM, 2/WEEK
     Route: 065
  3. NINLARO [Suspect]
     Active Substance: IXAZOMIB CITRATE
     Dosage: 20 MILLIGRAM, 2/WEEK
     Route: 065
     Dates: start: 20210324, end: 20210625
  4. XPOVIO [Suspect]
     Active Substance: SELINEXOR
     Indication: PRODUCT USED FOR UNKNOWN INDICATION
     Dosage: 20 MILLIGRAM, 3/WEEK
     Route: 065
     Dates: start: 20210324
  5. XPOVIO [Suspect]
     Active Substance: SELINEXOR
     Dosage: 60 MILLIGRAM, 1/WEEK
     Route: 048
  6. NINLARO [Suspect]
     Active Substance: IXAZOMIB CITRATE
     Indication: PLASMA CELL MYELOMA
     Dosage: 4 MILLIGRAM
     Route: 048
     Dates: start: 201909
  7. NINLARO [Suspect]
     Active Substance: IXAZOMIB CITRATE
     Dosage: 4 MILLIGRAM
     Route: 048
     Dates: start: 20190703, end: 20210412
  8. DEXAMETHASONE. [Suspect]
     Active Substance: DEXAMETHASONE
     Indication: PLASMA CELL MYELOMA
     Dosage: UNK
     Route: 065
  9. NINLARO [Suspect]
     Active Substance: IXAZOMIB CITRATE
     Dosage: 3 MILLIGRAM
     Route: 048

REACTIONS (17)
  - Insomnia [Unknown]
  - Stress [Unknown]
  - Peripheral swelling [Unknown]
  - Conjunctivitis [Unknown]
  - Blood test abnormal [Unknown]
  - White blood cell count decreased [Unknown]
  - Arthralgia [Unknown]
  - Diarrhoea [Unknown]
  - Contusion [Unknown]
  - Weight increased [Unknown]
  - Adverse drug reaction [Unknown]
  - Decreased appetite [Unknown]
  - Pain in extremity [Unknown]
  - Nausea [Unknown]
  - Off label use [Unknown]
  - Weight decreased [Unknown]
  - Vomiting [Unknown]

NARRATIVE: CASE EVENT DATE: 20191016
